FAERS Safety Report 6318978-8 (Version None)
Quarter: 2009Q3

REPORT INFORMATION
  Report Type: 
  Country: None (occurrence: None)
  Receive Date: 20090821
  Receipt Date: 20080910
  Transmission Date: 20100115
  Serious: No
  Sender: FDA-Public Use
  Company Number: US-ABBOTT-02P-163-0382526-00

PATIENT
  Sex: Male
  Weight: 74.002 kg

DRUGS (13)
  1. NIASPAN [Suspect]
     Indication: BLOOD CHOLESTEROL INCREASED
     Route: 048
     Dates: start: 20020201
  2. NIASPAN [Suspect]
     Indication: MYOCARDIAL INFARCTION
  3. ASPIRIN [Concomitant]
     Indication: PROPHYLAXIS
  4. ASPIRIN [Concomitant]
     Indication: FLUSHING
  5. MULTI-VITAMIN [Concomitant]
     Indication: SUPPLEMENTATION THERAPY
  6. TESTOSTERONE [Concomitant]
     Indication: DRUG USE FOR UNKNOWN INDICATION
  7. ALPRAZOLAM [Concomitant]
     Indication: HYPERTENSION
  8. METOPROLOL SUCCINATE [Concomitant]
     Indication: HYPERTENSION
  9. FOLIC ACID [Concomitant]
     Indication: DRUG USE FOR UNKNOWN INDICATION
  10. CEREFOLIN NAC [Concomitant]
     Indication: DRUG USE FOR UNKNOWN INDICATION
  11. INEGY [Concomitant]
     Indication: DRUG USE FOR UNKNOWN INDICATION
  12. ASPIRIN [Concomitant]
     Indication: PROPHYLAXIS
  13. ASPIRIN [Concomitant]
     Indication: FLUSHING

REACTIONS (5)
  - BURNING SENSATION [None]
  - FLUSHING [None]
  - MEMORY IMPAIRMENT [None]
  - PRURITUS [None]
  - SKIN DISCOMFORT [None]
